FAERS Safety Report 7281556-0 (Version None)
Quarter: 2010Q4

REPORT INFORMATION
  Report Type: 
  Country: None (occurrence: None)
  Receive Date: 20101221
  Receipt Date: 20100505
  Transmission Date: 20110411
  Serious: Yes (Other)
  Sender: FDA-Public Use
  Company Number: WAES 1005USA00431

PATIENT
  Age: 50 Year
  Sex: Female

DRUGS (4)
  1. JANUVIA [Suspect]
     Indication: TYPE 2 DIABETES MELLITUS
     Dosage: 100 MG/DAILY/PO
     Route: 048
     Dates: start: 20100101
  2. PREMARIN [Concomitant]
  3. METFORMIN [Concomitant]
  4. PROGESTERONE [Concomitant]

REACTIONS (1)
  - SWELLING FACE [None]
